FAERS Safety Report 8851017 (Version 1)
Quarter: 2012Q4

REPORT INFORMATION
  Report Type: 
  Country: US (occurrence: US)
  Receive Date: 20121019
  Receipt Date: 20121019
  Transmission Date: 20130627
  Serious: Yes (Hospitalization, Other)
  Sender: FDA-Public Use
  Company Number: US-VIROPHARMA INCORPORATED-20121010CINRY3483

PATIENT
  Age: 38 None
  Sex: Female

DRUGS (6)
  1. CINRYZE (C1 ESTERASE INHIBITOR (HUMAN)) [Suspect]
     Indication: HEREDITARY ANGIOEDEMA
  2. XANAX [Concomitant]
     Indication: PRODUCT USED FOR UNKNOWN INDICATION
     Route: 065
  3. KLONOPIN [Concomitant]
     Indication: PRODUCT USED FOR UNKNOWN INDICATION
     Route: 065
  4. TRAZODONE [Concomitant]
     Indication: PRODUCT USED FOR UNKNOWN INDICATION
     Route: 065
  5. CYMBALTA [Concomitant]
     Indication: PRODUCT USED FOR UNKNOWN INDICATION
     Route: 065
  6. PERCOCET [Concomitant]
     Indication: EXOSTOSIS
     Route: 065

REACTIONS (12)
  - Heart rate decreased [Recovered/Resolved]
  - Pyrexia [Recovered/Resolved]
  - Hypotension [Recovered/Resolved]
  - Oxygen saturation decreased [Recovered/Resolved]
  - Blood glucose decreased [Recovered/Resolved]
  - Pulmonary oedema [Recovered/Resolved]
  - Hereditary angioedema [Recovered/Resolved]
  - Oedema peripheral [Recovered/Resolved]
  - Therapy regimen changed [Not Recovered/Not Resolved]
  - Device infusion issue [Recovered/Resolved]
  - Drug dose omission [Not Recovered/Not Resolved]
  - Infusion related reaction [Recovered/Resolved]
